FAERS Safety Report 5121863-0 (Version None)
Quarter: 2006Q4

REPORT INFORMATION
  Report Type: 
  Country: None (occurrence: None)
  Receive Date: 20061006
  Receipt Date: 20030407
  Transmission Date: 20070319
  Serious: Yes (Other)
  Sender: FDA-Public Use
  Company Number: PHEH2003US02938

PATIENT
  Age: 40 Year
  Sex: Female

DRUGS (1)
  1. LAMISIL [Suspect]
     Indication: NAIL TINEA
     Dosage: 250 MG, QD
     Route: 048
     Dates: start: 20030217

REACTIONS (5)
  - AGEUSIA [None]
  - ANOSMIA [None]
  - FATIGUE [None]
  - HEADACHE [None]
  - SINUSITIS [None]
